FAERS Safety Report 14700969 (Version 2)
Quarter: 2018Q2

REPORT INFORMATION
  Report Type: Spontaneous
  Country: US (occurrence: US)
  Receive Date: 20180330
  Receipt Date: 20180511
  Transmission Date: 20180711
  Serious: No
  Sender: FDA-Public Use
  Company Number: US-ASTRAZENECA-2018SE29194

PATIENT
  Age: 22783 Day
  Sex: Female
  Weight: 127 kg

DRUGS (1)
  1. BYDUREON BCISE [Suspect]
     Active Substance: EXENATIDE
     Indication: TYPE 2 DIABETES MELLITUS
     Route: 058
     Dates: start: 201801

REACTIONS (8)
  - Intentional product misuse [Recovered/Resolved]
  - Skin warm [Recovering/Resolving]
  - Rash papular [Recovering/Resolving]
  - Device leakage [Unknown]
  - Injection site pruritus [Recovering/Resolving]
  - Injection site bruising [Recovered/Resolved]
  - Erythema [Recovering/Resolving]
  - Wrong technique in device usage process [Recovered/Resolved]

NARRATIVE: CASE EVENT DATE: 20180219
